FAERS Safety Report 8999369 (Version 1)
Quarter: 2013Q1

REPORT INFORMATION
  Report Type: Spontaneous
  Country: US (occurrence: US)
  Receive Date: 20130103
  Receipt Date: 20130103
  Transmission Date: 20140127
  Serious: No
  Sender: FDA-Public Use
  Company Number: US-PFIZER INC-2013001740

PATIENT
  Age: 46 Year
  Sex: Female
  Weight: 78.01 kg

DRUGS (7)
  1. LYRICA [Suspect]
     Indication: DIABETES MELLITUS
     Dosage: 75 MG, 2X/DAY
     Route: 048
     Dates: end: 201212
  2. LYRICA [Suspect]
     Indication: PAIN IN EXTREMITY
  3. LYRICA [Suspect]
     Indication: OSTEOARTHRITIS
  4. LYRICA [Suspect]
     Indication: RAYNAUD^S PHENOMENON
  5. LANTUS [Concomitant]
     Dosage: 30 MG,DAILY
  6. NOVOLOG [Concomitant]
     Dosage: 10 MG, 3X/DAY
  7. NAPROXEN [Concomitant]
     Dosage: 500 MG, 2X/DAY

REACTIONS (6)
  - Drug withdrawal syndrome [Not Recovered/Not Resolved]
  - Malaise [Not Recovered/Not Resolved]
  - Headache [Not Recovered/Not Resolved]
  - Nausea [Not Recovered/Not Resolved]
  - Bone pain [Not Recovered/Not Resolved]
  - Pain [Not Recovered/Not Resolved]
